FAERS Safety Report 10593921 (Version 9)
Quarter: 2019Q1

REPORT INFORMATION
  Report Type: Spontaneous
  Country: US (occurrence: US)
  Receive Date: 20141119
  Receipt Date: 20190218
  Transmission Date: 20190417
  Serious: No
  Sender: FDA-Public Use
  Company Number: US-PFIZER INC-2014317010

PATIENT
  Age: 78 Year
  Sex: Female

DRUGS (1)
  1. XANAX [Suspect]
     Active Substance: ALPRAZOLAM
     Indication: CARDIAC DISORDER
     Dosage: UNK

REACTIONS (5)
  - Drug hypersensitivity [Recovered/Resolved]
  - Tremor [Unknown]
  - Nervousness [Unknown]
  - Drug intolerance [Unknown]
  - Feeling abnormal [Recovered/Resolved]
